FAERS Safety Report 12964383 (Version 1)
Quarter: 2016Q4

REPORT INFORMATION
  Report Type: Spontaneous
  Country: CO (occurrence: CO)
  Receive Date: 20161122
  Receipt Date: 20161122
  Transmission Date: 20170207
  Serious: Yes (Death, Other)
  Sender: FDA-Public Use
  Company Number: CO-SA-2016SA212424

PATIENT
  Age: 90 Year
  Sex: Female

DRUGS (1)
  1. PLAVIX [Suspect]
     Active Substance: CLOPIDOGREL BISULFATE
     Indication: PROPHYLAXIS
     Route: 048
     Dates: start: 2013, end: 20150602

REACTIONS (2)
  - General physical health deterioration [Unknown]
  - Myocardial infarction [Fatal]

NARRATIVE: CASE EVENT DATE: 201506
